FAERS Safety Report 14509437 (Version 2)
Quarter: 2018Q1

REPORT INFORMATION
  Report Type: Report from Study
  Country: CR (occurrence: CR)
  Receive Date: 20180209
  Receipt Date: 20180311
  Transmission Date: 20180509
  Serious: Yes (Hospitalization, Other)
  Sender: FDA-Public Use
  Company Number: PHHY2017CR159025

PATIENT
  Age: 73 Year
  Sex: Female
  Weight: 63 kg

DRUGS (7)
  1. DIOVAN [Suspect]
     Active Substance: VALSARTAN
     Indication: PRODUCT USED FOR UNKNOWN INDICATION
     Dosage: 160 MG, UNK
     Route: 065
  2. EXELON PATCH [Suspect]
     Active Substance: RIVASTIGMINE
     Indication: MEMORY IMPAIRMENT
     Dosage: 4.6 MG, QD, PATCH 5 (CM2) (IN THE MORNING)
     Route: 062
  3. EXELON PATCH [Suspect]
     Active Substance: RIVASTIGMINE
     Indication: SENILE DEMENTIA
     Dosage: 9.5 MG, QD PATCH 10 (CM2)
     Route: 062
  4. ALFACALCIDOL [Concomitant]
     Active Substance: ALFACALCIDOL
     Indication: PRODUCT USED FOR UNKNOWN INDICATION
     Route: 065
  5. CALCIUM [Concomitant]
     Active Substance: CALCIUM
     Indication: PRODUCT USED FOR UNKNOWN INDICATION
     Route: 065
  6. ALTRULINE [Concomitant]
     Active Substance: SERTRALINE HYDROCHLORIDE
     Indication: CERVICAL CORD COMPRESSION
     Route: 065
  7. EUTEBROL [Concomitant]
     Indication: CERVICAL CORD COMPRESSION
     Route: 065

REACTIONS (19)
  - Injury [Unknown]
  - Cardiac output decreased [Unknown]
  - Pulse waveform abnormal [Unknown]
  - Amnesia [Unknown]
  - Hypertension [Unknown]
  - Dyspnoea exertional [Unknown]
  - Cerebral atrophy [Unknown]
  - Arterial disorder [Unknown]
  - Bacterial test positive [Unknown]
  - Cardiac index abnormal [Unknown]
  - Red blood cell count increased [Unknown]
  - Myocardial necrosis [Unknown]
  - Dyslipidaemia [Unknown]
  - Mean platelet volume increased [Unknown]
  - Arteriosclerosis [Unknown]
  - Myocardial infarction [Unknown]
  - Vascular resistance systemic increased [Unknown]
  - Osteoporosis [Unknown]
  - Nightmare [Unknown]

NARRATIVE: CASE EVENT DATE: 20170313
